FAERS Safety Report 4734342-7 (Version None)
Quarter: 2005Q3

REPORT INFORMATION
  Report Type: 
  Country: None (occurrence: None)
  Receive Date: 20050721
  Receipt Date: 20050415
  Transmission Date: 20060218
  Serious: No
  Sender: FDA-Public Use
  Company Number: 2005SP000205

PATIENT
  Age: 52 Year
  Sex: Male
  Weight: 86.1834 kg

DRUGS (2)
  1. LUNESTA [Suspect]
     Indication: PANIC DISORDER
     Dosage: 2 MG;HS;ORAL
     Route: 048
     Dates: start: 20050401, end: 20050414
  2. AMBIEN [Concomitant]

REACTIONS (5)
  - DYSGEUSIA [None]
  - FATIGUE [None]
  - INSOMNIA [None]
  - MALAISE [None]
  - PAROSMIA [None]
